FAERS Safety Report 6573094-5 (Version None)
Quarter: 2010Q1

REPORT INFORMATION
  Report Type: 
  Country: None (occurrence: None)
  Receive Date: 20100208
  Receipt Date: 20100125
  Transmission Date: 20100710
  Serious: Yes (Death)
  Sender: FDA-Public Use
  Company Number: GB-JNJFOC-20080802573

PATIENT
  Age: 2 Year
  Sex: Female

DRUGS (2)
  1. PARACETAMOL [Suspect]
     Route: 054
  2. PARACETAMOL [Suspect]
     Indication: PYREXIA
     Dosage: DURATION OF TREATMENT 70 HRS, ALLEGED MAXIMUM DOSE 11 G
     Route: 054

REACTIONS (4)
  - HEPATIC NECROSIS [None]
  - OVERDOSE [None]
  - RENAL TUBULAR NECROSIS [None]
  - WRONG DRUG ADMINISTERED [None]
